FAERS Safety Report 12924083 (Version 2)
Quarter: 2017Q2

REPORT INFORMATION
  Report Type: Spontaneous
  Country: US (occurrence: US)
  Receive Date: 20161108
  Receipt Date: 20170407
  Transmission Date: 20170830
  Serious: Yes (Hospitalization)
  Sender: FDA-Public Use
  Company Number: US-KERYX BIOPHARMACEUTICALS, INC.-2016US002327

PATIENT
  Age: 56 Year
  Sex: Female
  Weight: 47.5 kg

DRUGS (15)
  1. COLACE [Concomitant]
     Active Substance: DOCUSATE SODIUM
     Indication: CONSTIPATION
     Dosage: 100 MG, QD
     Route: 048
  2. XALATAN [Concomitant]
     Active Substance: LATANOPROST
     Indication: GLAUCOMA
     Dosage: 0.005 %, 1 DROP RIGHT EYE AT NIGHT
     Route: 047
  3. EPOETIN ALFA [Concomitant]
     Active Substance: ERYTHROPOIETIN
     Dosage: 3500 UNIT (4 DOSES)
     Dates: start: 20160716, end: 20160804
  4. SENSIPAR [Concomitant]
     Active Substance: CINACALCET HYDROCHLORIDE
     Indication: SUPPLEMENTATION THERAPY
     Dosage: 90 MG, QD
     Route: 048
  5. MIRALAX [Concomitant]
     Active Substance: POLYETHYLENE GLYCOL 3350
     Indication: PRODUCT USED FOR UNKNOWN INDICATION
     Dosage: UNK
  6. AMLODIPINE [Concomitant]
     Active Substance: AMLODIPINE BESYLATE
     Indication: PRODUCT USED FOR UNKNOWN INDICATION
     Dosage: 10 MG MORNING; 5 MG AT NIGHT
     Route: 048
  7. COREG [Concomitant]
     Active Substance: CARVEDILOL
     Indication: ATRIAL FIBRILLATION
     Dosage: 3.125 MG, Q12H
     Route: 048
  8. AURYXIA [Suspect]
     Active Substance: TETRAFERRIC TRICITRATE DECAHYDRATE
     Indication: HYPERPHOSPHATAEMIA
     Dosage: 2 G (2 TABLETS) TID, 1 G (1 TABLET) WITH A SNACK
     Route: 048
     Dates: start: 20160820
  9. PHOSLO [Concomitant]
     Active Substance: CALCIUM ACETATE
     Indication: BLOOD PHOSPHORUS INCREASED
     Dosage: 667 MG, PRN
     Route: 048
  10. LACTOBACILLUS [Concomitant]
     Active Substance: LACTOBACILLUS ACIDOPHILUS
     Indication: SUPPLEMENTATION THERAPY
     Dosage: 1 CAPSULE, QD
     Route: 048
  11. EPOETIN ALFA [Concomitant]
     Active Substance: ERYTHROPOIETIN
     Indication: PRODUCT USED FOR UNKNOWN INDICATION
     Dosage: 7000 UNIT (9 DOSES)
     Dates: start: 20160604, end: 20160714
  12. EPOETIN ALFA [Concomitant]
     Active Substance: ERYTHROPOIETIN
     Dosage: 2500 UNIT (9 DOSES)
  13. ACETAMINOPHEN. [Concomitant]
     Active Substance: ACETAMINOPHEN
     Indication: PAIN
     Dosage: 325 MG, PRN
     Route: 048
  14. AURYXIA [Suspect]
     Active Substance: TETRAFERRIC TRICITRATE DECAHYDRATE
     Dosage: 2 G (2 TABLETS) TID, 1 G (1 TABLET) WITH A SNACK
     Route: 048
     Dates: end: 20160921
  15. TRUSOPT [Concomitant]
     Active Substance: DORZOLAMIDE HYDROCHLORIDE
     Indication: GLAUCOMA
     Dosage: 2 %, UNK
     Route: 047

REACTIONS (8)
  - Blood iron increased [Recovered/Resolved]
  - Acute respiratory failure [Unknown]
  - Pulmonary oedema [Unknown]
  - Headache [Unknown]
  - Ovarian cyst [Recovered/Resolved]
  - Constipation [Unknown]
  - Arthralgia [Unknown]
  - Abdominal pain lower [Unknown]

NARRATIVE: CASE EVENT DATE: 20160901
